FAERS Safety Report 7552608-2 (Version None)
Quarter: 2011Q2

REPORT INFORMATION
  Report Type: 
  Country: None (occurrence: None)
  Receive Date: 20110616
  Receipt Date: 20110610
  Transmission Date: 20111010
  Serious: Yes (Other)
  Sender: FDA-Public Use
  Company Number: CHPA2011US07884

PATIENT
  Sex: Female
  Weight: 58.957 kg

DRUGS (2)
  1. TRANSDERM SCOP [Suspect]
     Dosage: UNK DF, UNK
     Route: 062
  2. TRANSDERM SCOP [Suspect]
     Dosage: UNK DF, UNK
     Route: 062

REACTIONS (3)
  - LOSS OF CONSCIOUSNESS [None]
  - HALLUCINATION [None]
  - APPLICATION SITE BURN [None]
